FAERS Safety Report 9789449 (Version 1)
Quarter: 2013Q4

REPORT INFORMATION
  Report Type: Spontaneous
  Country: LB (occurrence: LB)
  Receive Date: 20131231
  Receipt Date: 20131231
  Transmission Date: 20140711
  Serious: Yes (Hospitalization, Other)
  Sender: FDA-Public Use
  Company Number: PHHY2013LB151819

PATIENT
  Age: 21 Year
  Sex: Male

DRUGS (5)
  1. VALPROIC ACID [Suspect]
     Indication: BIPOLAR DISORDER
  2. SEROQUEL [Interacting]
  3. PANADOL [Concomitant]
     Indication: DRUG WITHDRAWAL SYNDROME
  4. PROFENID [Concomitant]
     Indication: DRUG WITHDRAWAL SYNDROME
  5. VALIUM [Concomitant]

REACTIONS (5)
  - Hyperammonaemia [Recovered/Resolved]
  - Confusional state [Recovering/Resolving]
  - Lethargy [Unknown]
  - Disorientation [Recovering/Resolving]
  - Drug interaction [Unknown]
